FAERS Safety Report 19374763 (Version 1)
Quarter: 2021Q2

REPORT INFORMATION
  Report Type: Spontaneous
  Country: US (occurrence: US)
  Receive Date: 20210604
  Receipt Date: 20210604
  Transmission Date: 20210717
  Serious: Yes (Hospitalization)
  Sender: FDA-Public Use
  Company Number: US-UNICHEM PHARMACEUTICALS (USA) INC-UCM202105-000471

PATIENT
  Age: 15 Year
  Sex: Female

DRUGS (2)
  1. TOPIRAMATE. [Suspect]
     Active Substance: TOPIRAMATE
     Indication: MENINGITIS ASEPTIC
     Dosage: AT BEDTIME
  2. FUROSEMIDE. [Suspect]
     Active Substance: FUROSEMIDE
     Indication: MENINGITIS ASEPTIC
     Dosage: EVERY OTHER DAY

REACTIONS (6)
  - Headache [Recovered/Resolved]
  - Staring [Unknown]
  - Papilloedema [Recovering/Resolving]
  - Blindness [Unknown]
  - Somnolence [Unknown]
  - Amnesia [Unknown]
